FAERS Safety Report 4959636-1 (Version None)
Quarter: 2006Q1

REPORT INFORMATION
  Report Type: 
  Country: None (occurrence: None)
  Receive Date: 20060331
  Receipt Date: 20060207
  Transmission Date: 20060701
  Serious: Yes (Hospitalization)
  Sender: FDA-Public Use
  Company Number: US-ROCHE-435191

PATIENT
  Sex: Female

DRUGS (9)
  1. MYCOPHENOLATE MOFETIL [Suspect]
     Route: 065
     Dates: start: 20050510
  2. ALEMTUZUMAB [Suspect]
     Dosage: TAKEN INTRAOPERATIVELY AND ON POST OPERATIVE DAY 2 AS PER PROTOCOL
     Route: 065
     Dates: start: 20050510, end: 20050510
  3. ALEMTUZUMAB [Suspect]
     Route: 065
     Dates: start: 20050512, end: 20050512
  4. PROGRAF [Suspect]
     Route: 065
     Dates: start: 20050511
  5. PROGRAF [Suspect]
     Dosage: TAKEN ON ALTERNATIVE DAYS.
     Route: 065
     Dates: start: 20050602, end: 20051203
  6. PROGRAF [Suspect]
     Route: 065
     Dates: start: 20051203
  7. ALTACE [Concomitant]
  8. LABETALOL HCL [Concomitant]
  9. BACTRIM [Concomitant]

REACTIONS (5)
  - DIARRHOEA [None]
  - DIZZINESS [None]
  - NAUSEA [None]
  - URINARY TRACT INFECTION [None]
  - VOMITING [None]
